FAERS Safety Report 6215844-3 (Version None)
Quarter: 2009Q2

REPORT INFORMATION
  Report Type: 
  Country: None (occurrence: None)
  Receive Date: 20090605
  Receipt Date: 20090603
  Transmission Date: 20091009
  Serious: No
  Sender: FDA-Public Use
  Company Number: KR-JNJFOC-20090600227

PATIENT
  Age: 30 Year
  Sex: Male

DRUGS (2)
  1. DURAGESIC-100 [Suspect]
     Route: 062
  2. DURAGESIC-100 [Suspect]
     Indication: MUSCLE RUPTURE
     Dosage: TWO PACHES OF 25 MCG - EVERY 3 DAYS
     Route: 062

REACTIONS (6)
  - ANOREXIA [None]
  - DRUG ADMINISTERED AT INAPPROPRIATE SITE [None]
  - DYSPHORIA [None]
  - HYPERHIDROSIS [None]
  - NAUSEA [None]
  - WRONG TECHNIQUE IN DRUG USAGE PROCESS [None]
